FAERS Safety Report 7815254-9 (Version None)
Quarter: 2011Q4

REPORT INFORMATION
  Report Type: 
  Country: None (occurrence: None)
  Receive Date: 20111014
  Receipt Date: 20111006
  Transmission Date: 20120403
  Serious: Yes (Other)
  Sender: FDA-Public Use
  Company Number: US-JNJFOC-20110902614

PATIENT
  Age: 52 Year
  Sex: Female
  Weight: 68.95 kg

DRUGS (5)
  1. NEOSPORIN [Suspect]
     Indication: IMPAIRED HEALING
     Dosage: TWICE OR THREE TIMES A DAY
     Route: 061
     Dates: start: 20110819, end: 20110826
  2. UNSPECIFIED ANTIBOTIC [Concomitant]
     Route: 065
  3. UNSPECIFIED ANTIBOTIC [Concomitant]
     Indication: INFECTION PROPHYLAXIS
     Route: 065
  4. UNSPECIFIED ANTIBOTIC [Concomitant]
     Route: 065
  5. UNSPECIFIED ANTIBOTIC [Concomitant]
     Route: 065

REACTIONS (7)
  - SKIN ATROPHY [None]
  - APPLICATION SITE ERYTHEMA [None]
  - INCISION SITE COMPLICATION [None]
  - SKIN EXFOLIATION [None]
  - OFF LABEL USE [None]
  - SKIN LESION [None]
  - SKIN TIGHTNESS [None]
